FAERS Safety Report 25364779 (Version 1)
Quarter: 2025Q2

REPORT INFORMATION
  Report Type: Spontaneous
  Country: NL (occurrence: NL)
  Receive Date: 20250527
  Receipt Date: 20250527
  Transmission Date: 20250716
  Serious: Yes (Other)
  Sender: MYLAN
  Company Number: NL-MYLANLABS-2025M1044129

PATIENT
  Age: 22 Year
  Sex: Female

DRUGS (4)
  1. COLCHICINE [Suspect]
     Active Substance: COLCHICINE
     Indication: Secondary amyloidosis
  2. COLCHICINE [Suspect]
     Active Substance: COLCHICINE
     Route: 065
  3. COLCHICINE [Suspect]
     Active Substance: COLCHICINE
     Route: 065
  4. COLCHICINE [Suspect]
     Active Substance: COLCHICINE

REACTIONS (2)
  - Drug ineffective for unapproved indication [Unknown]
  - Off label use [Unknown]
